FAERS Safety Report 21755995 (Version 2)
Quarter: 2023Q1

REPORT INFORMATION
  Report Type: Spontaneous
  Country: RU (occurrence: RU)
  Receive Date: 20221220
  Receipt Date: 20230111
  Transmission Date: 20230418
  Serious: Yes (Hospitalization, Other)
  Sender: FDA-Public Use
  Company Number: RU-INSUD PHARMA-2212RU05438

PATIENT

DRUGS (14)
  1. TESTOSTERONE [Suspect]
     Active Substance: TESTOSTERONE
     Indication: Muscle building therapy
     Dosage: 750 UNITS WEEKLY
     Route: 065
  2. TESTOSTERONE [Suspect]
     Active Substance: TESTOSTERONE
     Dosage: 50 UNITS WEKLY (AS PROPIONATE)
  3. TRENBOLONE ACETATE [Suspect]
     Active Substance: TRENBOLONE ACETATE
     Indication: Muscle building therapy
     Dosage: 400 UNITS WEEKLY
     Route: 065
  4. NANDROLONE DECANOATE [Suspect]
     Active Substance: NANDROLONE DECANOATE
     Indication: Muscle building therapy
     Dosage: 500 UNITS WEEKLY
     Route: 065
  5. TRENBOLONE ENANTHATE [Suspect]
     Active Substance: TRENBOLONE ENANTHATE
     Indication: Muscle building therapy
     Dosage: 500 UNITS WEEKLY
     Route: 065
  6. OXYMETHOLONE [Suspect]
     Active Substance: OXYMETHOLONE
     Indication: Muscle building therapy
     Dosage: 100 MILLIGRAM, WEEKLY
     Route: 065
  7. UNSPECIFIED INGREDIENT [Suspect]
     Active Substance: UNSPECIFIED INGREDIENT
     Indication: Muscle building therapy
     Dosage: 500 UNITS WEEKLY
     Route: 065
  8. DROMOSTANOLONE PROPIONATE [Suspect]
     Active Substance: DROMOSTANOLONE PROPIONATE
     Indication: Muscle building therapy
     Dosage: 50 UNITS WEEKLY
     Route: 065
  9. FLUOXYMESTERONE [Suspect]
     Active Substance: FLUOXYMESTERONE
     Indication: Muscle building therapy
     Dosage: UNK UNK, DAILY
     Route: 065
  10. METHANDROSTENOLONE [Suspect]
     Active Substance: METHANDROSTENOLONE
     Indication: Muscle building therapy
     Dosage: 50 MG TABLETED DAILY
     Route: 065
  11. STANOZOLOL [Suspect]
     Active Substance: STANOZOLOL
     Indication: Muscle building therapy
     Dosage: 60 MG TABLETED DAILY
     Route: 065
  12. SOMATROPIN [Concomitant]
     Active Substance: SOMATROPIN
     Indication: Muscle building therapy
     Dosage: 5 UNITS DAILY
     Route: 065
  13. LEVOTHYROXINE SODIUM [Concomitant]
     Active Substance: LEVOTHYROXINE SODIUM
     Dosage: 150 MG DAILY
     Route: 065
  14. UNSPECIFIED INGREDIENT [Concomitant]
     Active Substance: UNSPECIFIED INGREDIENT
     Indication: Muscle building therapy
     Dosage: OCCASIONAL USE
     Route: 065

REACTIONS (3)
  - Renal cell carcinoma stage II [Recovering/Resolving]
  - Hepatic adenoma [Recovering/Resolving]
  - Abdominal pain upper [Unknown]
